FAERS Safety Report 17116801 (Version 1)
Quarter: 2019Q4

REPORT INFORMATION
  Report Type: Spontaneous
  Country: GB (occurrence: US)
  Receive Date: 20191205
  Receipt Date: 20191205
  Transmission Date: 20200122
  Serious: No
  Sender: FDA-Public Use
  Company Number: US-ASTELLAS-2019US048150

PATIENT
  Sex: Female

DRUGS (1)
  1. TARCEVA [Suspect]
     Active Substance: ERLOTINIB HYDROCHLORIDE
     Indication: LUNG NEOPLASM MALIGNANT
     Route: 048
     Dates: start: 20181029, end: 20190905

REACTIONS (5)
  - Diarrhoea [Unknown]
  - Dry eye [Unknown]
  - Dry mouth [Unknown]
  - Dry skin [Unknown]
  - Blood blister [Unknown]
